FAERS Safety Report 8282075-5 (Version None)
Quarter: 2012Q2

REPORT INFORMATION
  Report Type: 
  Country: None (occurrence: None)
  Receive Date: 20120413
  Receipt Date: 20120403
  Transmission Date: 20120825
  Serious: Yes (Hospitalization, Other)
  Sender: FDA-Public Use
  Company Number: DE-PFIZER INC-2011271828

PATIENT
  Age: 38 Hour
  Sex: Male
  Weight: 2.99 kg

DRUGS (1)
  1. MORPHINE SULFATE [Suspect]
     Indication: PAIN
     Dosage: 15 UG/KG/H
     Route: 042

REACTIONS (3)
  - ERYTHEMA [None]
  - URINARY RETENTION [None]
  - BLADDER DILATATION [None]
